FAERS Safety Report 18931903 (Version 2)
Quarter: 2021Q1

REPORT INFORMATION
  Report Type: Report from Study
  Country: None (occurrence: US)
  Receive Date: 20210224
  Receipt Date: 20210308
  Transmission Date: 20210420
  Serious: Yes (Other)
  Sender: FDA-Public Use
  Company Number: US-ABBVIE-21K-163-3759442-00

PATIENT
  Age: 50 Year
  Sex: Female
  Weight: 101.24 kg

DRUGS (9)
  1. GABAPENTINE [Concomitant]
     Active Substance: GABAPENTIN
     Indication: MOOD SWINGS
  2. CLONIDINE. [Concomitant]
     Active Substance: CLONIDINE
     Indication: ANXIETY
  3. EMGALITY [Concomitant]
     Active Substance: GALCANEZUMAB-GNLM
     Indication: MIGRAINE
  4. DEPAKOTE [Concomitant]
     Active Substance: DIVALPROEX SODIUM
     Indication: MOOD SWINGS
  5. ZOLOFT [Concomitant]
     Active Substance: SERTRALINE HYDROCHLORIDE
     Indication: DEPRESSION
  6. HUMIRA [Suspect]
     Active Substance: ADALIMUMAB
     Indication: RHEUMATOID ARTHRITIS
     Route: 058
     Dates: start: 20201001, end: 202101
  7. HUMIRA [Suspect]
     Active Substance: ADALIMUMAB
     Route: 058
     Dates: start: 20210301
  8. PROPANOLOL [Concomitant]
     Active Substance: PROPRANOLOL HYDROCHLORIDE
     Indication: HYPERTENSION
  9. FLEXERIL [Concomitant]
     Active Substance: CYCLOBENZAPRINE HYDROCHLORIDE
     Indication: MUSCLE SPASMS

REACTIONS (3)
  - Spinal stenosis [Recovering/Resolving]
  - Pain [Recovered/Resolved]
  - Spinal fusion acquired [Recovering/Resolving]

NARRATIVE: CASE EVENT DATE: 202011
